FAERS Safety Report 11379533 (Version 1)
Quarter: 2015Q3

REPORT INFORMATION
  Report Type: Spontaneous
  Country: US (occurrence: None)
  Receive Date: 20150813
  Receipt Date: 20150813
  Transmission Date: 20151125
  Serious: No
  Sender: FDA-Public Use
  Company Number: None

PATIENT
  Age: 31 Year
  Sex: Female
  Weight: 63.5 kg

DRUGS (2)
  1. ACCUTANE [Suspect]
     Active Substance: ISOTRETINOIN
  2. LOESTRIN 21 FE [Concomitant]
     Indication: ACNE
     Route: 048
     Dates: start: 20150611, end: 20150807

REACTIONS (1)
  - Rash [None]

NARRATIVE: CASE EVENT DATE: 20150808
